FAERS Safety Report 12955112 (Version 1)
Quarter: 2016Q4

REPORT INFORMATION
  Report Type: Spontaneous
  Country: US (occurrence: US)
  Receive Date: 20161118
  Receipt Date: 20161118
  Transmission Date: 20170207
  Serious: No
  Sender: FDA-Public Use
  Company Number: US-PERRIGO-15US010821

PATIENT
  Sex: Female
  Weight: 42.63 kg

DRUGS (3)
  1. PROGESTERONE. [Suspect]
     Active Substance: PROGESTERONE
     Indication: HORMONE REPLACEMENT THERAPY
     Dosage: 100 MG, QD
     Route: 048
     Dates: start: 2012, end: 20151009
  2. ESTROGEN [Suspect]
     Active Substance: ESTRONE\SUS SCROFA OVARY
     Indication: HORMONE REPLACEMENT THERAPY
     Dosage: 1 MG, QD
     Route: 048
     Dates: end: 20151009
  3. POLYETHYLENE GLYCOL 3350. [Suspect]
     Active Substance: POLYETHYLENE GLYCOL 3350
     Indication: CONSTIPATION
     Dosage: 17 G, TID
     Route: 048
     Dates: start: 2012

REACTIONS (3)
  - Incorrect drug administration duration [Not Recovered/Not Resolved]
  - Inappropriate schedule of drug administration [Not Recovered/Not Resolved]
  - Alopecia [Not Recovered/Not Resolved]

NARRATIVE: CASE EVENT DATE: 2012
